FAERS Safety Report 24009575 (Version 1)
Quarter: 2024Q2

REPORT INFORMATION
  Report Type: Spontaneous
  Country: CN (occurrence: CN)
  Receive Date: 20240625
  Receipt Date: 20240625
  Transmission Date: 20240716
  Serious: Yes (Other)
  Sender: FDA-Public Use
  Company Number: None

PATIENT
  Age: 2 Year
  Sex: Female
  Weight: 17.4 kg

DRUGS (12)
  1. CYCLOPHOSPHAMIDE [Suspect]
     Active Substance: CYCLOPHOSPHAMIDE
     Indication: Ganglioneuroblastoma
     Dosage: 0.8 G, ONE TIME IN ONE DAY, DILUTED WITH 250 ML OF SODIUM CHLORIDE (NS), START TIME: AT 8:00
     Route: 041
     Dates: start: 20240523, end: 20240523
  2. CYCLOPHOSPHAMIDE [Suspect]
     Active Substance: CYCLOPHOSPHAMIDE
     Indication: Chemotherapy
  3. SODIUM CHLORIDE [Suspect]
     Active Substance: SODIUM CHLORIDE
     Indication: Medication dilution
     Dosage: 250 ML, ONE TIME IN ONE DAY, USED TO DILUTE 0.8 G OF CYCLOPHOSPHAMIDE, START TIME: AT 8:00
     Route: 041
     Dates: start: 20240523, end: 20240523
  4. SODIUM CHLORIDE [Suspect]
     Active Substance: SODIUM CHLORIDE
     Dosage: 400 ML, ONE TIME IN ONE DAY, USED TO DILUTE 0.1 G OF ETOPOSIDE, START TIME: AT 8:00
     Route: 041
     Dates: start: 20240523
  5. SODIUM CHLORIDE [Suspect]
     Active Substance: SODIUM CHLORIDE
     Dosage: 250 ML, ONE TIME IN ONE DAY, USED TO DILUTE 60 MG OF CISPLATIN, START TIME: AT 8:00
     Route: 041
     Dates: start: 20240523
  6. SODIUM CHLORIDE [Suspect]
     Active Substance: SODIUM CHLORIDE
     Dosage: 20 ML, ONE TIME IN ONE DAY, USED TO DILUTE 1 MG OF VINCRISTINE SULFATE, START TIME: AT 8:00
     Route: 041
     Dates: start: 20240523, end: 20240523
  7. ETOPOSIDE [Suspect]
     Active Substance: ETOPOSIDE
     Indication: Ganglioneuroblastoma
     Dosage: 0.1G, ONE TIME IN ONE DAY, DILUTED WITH 400 ML OF SODIUM CHLORIDE (NS), START TIME: AT 8:00
     Route: 041
     Dates: start: 20240523
  8. ETOPOSIDE [Suspect]
     Active Substance: ETOPOSIDE
     Indication: Chemotherapy
  9. CISPLATIN [Suspect]
     Active Substance: CISPLATIN
     Indication: Ganglioneuroblastoma
     Dosage: 60 MG, ONE TIME IN ONE DAY, DILUTED WITH 250 ML OF SODIUM CHLORIDE (NS), START TIME: AT 8:00
     Route: 041
     Dates: start: 20240523
  10. CISPLATIN [Suspect]
     Active Substance: CISPLATIN
     Indication: Chemotherapy
  11. VINCRISTINE SULFATE [Suspect]
     Active Substance: VINCRISTINE SULFATE
     Indication: Ganglioneuroblastoma
     Dosage: 1 MG, ONE TIME IN ONE DAY, DILUTED WITH 20 ML OF SODIUM CHLORIDE (NS), START TIME: AT 8:00
     Route: 041
     Dates: start: 20240523, end: 20240523
  12. VINCRISTINE SULFATE [Suspect]
     Active Substance: VINCRISTINE SULFATE
     Indication: Chemotherapy

REACTIONS (1)
  - Myelosuppression [Recovering/Resolving]

NARRATIVE: CASE EVENT DATE: 20240527
